FAERS Safety Report 13129113 (Version 1)
Quarter: 2017Q1

REPORT INFORMATION
  Report Type: Spontaneous
  Country: US (occurrence: US)
  Receive Date: 20170118
  Receipt Date: 20170118
  Transmission Date: 20170428
  Serious: No
  Sender: FDA-Public Use
  Company Number: None

PATIENT
  Sex: Female
  Weight: 73.94 kg

DRUGS (11)
  1. LORAZEPAM. [Concomitant]
     Active Substance: LORAZEPAM
  2. DIPHENHYDRAMINE. [Concomitant]
     Active Substance: DIPHENHYDRAMINE
  3. HYLAND LEG CRAMPS [Concomitant]
  4. TRIAMCINOLONE [Concomitant]
     Active Substance: TRIAMCINOLONE
  5. LATANAPROST [Suspect]
     Active Substance: LATANOPROST
     Indication: GLAUCOMA
     Dates: start: 20160602
  6. BACLOFEN. [Concomitant]
     Active Substance: BACLOFEN
  7. MELATONIN [Concomitant]
     Active Substance: MELATONIN
  8. LAMICTAL [Concomitant]
     Active Substance: LAMOTRIGINE
  9. CLONIDINE. [Concomitant]
     Active Substance: CLONIDINE
  10. IBUPROFEN. [Concomitant]
     Active Substance: IBUPROFEN
  11. LORATADINE. [Concomitant]
     Active Substance: LORATADINE

REACTIONS (2)
  - Hypersensitivity [None]
  - Insomnia [None]
